FAERS Safety Report 21583288 (Version 1)
Quarter: 2022Q4

REPORT INFORMATION
  Report Type: Report from Study
  Country: KR (occurrence: KR)
  Receive Date: 20221111
  Receipt Date: 20221111
  Transmission Date: 20230113
  Serious: Yes (Other)
  Sender: FDA-Public Use
  Company Number: KR-GLAXOSMITHKLINE-KR2020GSK042406

PATIENT

DRUGS (2)
  1. LAMOTRIGINE [Suspect]
     Active Substance: LAMOTRIGINE
     Indication: Bipolar disorder
     Dosage: 150 MG, QD
     Route: 048
  2. VALPROATE SODIUM [Suspect]
     Active Substance: VALPROATE SODIUM
     Indication: Product used for unknown indication
     Dosage: 300 MG, QD, SUSTAINED RELEASE FILM COATED TABLET
     Route: 048

REACTIONS (3)
  - Seizure [Unknown]
  - Sleep disorder [Unknown]
  - Cardiospasm [Unknown]
